FAERS Safety Report 5068861-3 (Version None)
Quarter: 2006Q3

REPORT INFORMATION
  Report Type: 
  Country: None (occurrence: None)
  Receive Date: 20060802
  Receipt Date: 20060508
  Transmission Date: 20061208
  Serious: No
  Sender: FDA-Public Use
  Company Number: US-BRISTOL-MYERS SQUIBB COMPANY-13371174

PATIENT
  Age: 81 Year
  Sex: Female
  Weight: 63 kg

DRUGS (5)
  1. COUMADIN [Suspect]
     Indication: ISCHAEMIA
     Dosage: TAKEN FOR THE LAST 5 YEARS, HAS TAKEN 1 AND 1/4 TAB FOR THE LAST 3 YEARS
     Route: 048
  2. LANOXICAPS [Concomitant]
  3. METOPROLOL [Concomitant]
  4. LISINOPRIL [Concomitant]
  5. EYE DROPS [Concomitant]

REACTIONS (2)
  - ARTHRITIS [None]
  - SPINAL COLUMN STENOSIS [None]
